FAERS Safety Report 6833307-9 (Version None)
Quarter: 2010Q3

REPORT INFORMATION
  Report Type: 
  Country: None (occurrence: None)
  Receive Date: 20100712
  Receipt Date: 20100630
  Transmission Date: 20110219
  Serious: Yes (Hospitalization)
  Sender: FDA-Public Use
  Company Number: NO-AMGEN-QUU415673

PATIENT
  Sex: Female

DRUGS (5)
  1. ENBREL [Suspect]
     Indication: RHEUMATOID ARTHRITIS
     Dates: end: 20100101
  2. ENBREL [Interacting]
     Dates: start: 20100101
  3. ETHANOL [Interacting]
     Indication: PRODUCT USED FOR UNKNOWN INDICATION
     Dosage: UNKNOWN QUANTITY
     Route: 048
     Dates: start: 20100430, end: 20100430
  4. METHOTREXATE [Interacting]
     Indication: RHEUMATOID ARTHRITIS
     Dates: end: 20100101
  5. METHOTREXATE [Interacting]
     Dates: start: 20100101

REACTIONS (3)
  - ABDOMINAL INFECTION [None]
  - ABDOMINAL PAIN UPPER [None]
  - PANCREATITIS [None]
